FAERS Safety Report 10228637 (Version 1)
Quarter: 2014Q2

REPORT INFORMATION
  Report Type: Spontaneous
  Country: GB (occurrence: GB)
  Receive Date: 20140610
  Receipt Date: 20140610
  Transmission Date: 20141212
  Serious: Yes (Other)
  Sender: FDA-Public Use
  Company Number: GB-BANPHARM-20142751

PATIENT
  Age: 3 Week
  Sex: Male
  Weight: .75 kg

DRUGS (2)
  1. IBUPROFEN UNKNOWN PRODUCT [Suspect]
     Indication: PATENT DUCTUS ARTERIOSUS
     Dosage: 10 MG/ KG (DAY 1), 5 MG/KG (DAY 2 + 3)
     Route: 042
  2. CUROSURF [Concomitant]

REACTIONS (1)
  - Intestinal perforation [Recovering/Resolving]
